FAERS Safety Report 4675857-X (Version None)
Quarter: 2005Q2

REPORT INFORMATION
  Report Type: 
  Country: None (occurrence: None)
  Receive Date: 20050527
  Receipt Date: 20050316
  Transmission Date: 20051028
  Serious: Yes (Hospitalization, Other)
  Sender: FDA-Public Use
  Company Number: GBWYE508916MAR05

PATIENT
  Sex: Male

DRUGS (9)
  1. ENBREL [Suspect]
     Indication: RHEUMATOID ARTHRITIS
     Route: 058
     Dates: start: 20040802, end: 20050304
  2. NSAIDS [Suspect]
     Dosage: UNKNOWN
  3. DEPO-MEDRONE [Concomitant]
  4. CORTICOSTEROID NOS [Concomitant]
     Dosage: 15 MG, FREQUENCY UNKNOWN
  5. PREDNISOLONE [Concomitant]
     Dates: start: 20021206
  6. PREDNISOLONE [Concomitant]
     Dates: start: 20050101
  7. AMITRIPTYLINE [Concomitant]
  8. CALCIUM CARBONATE [Concomitant]
     Dates: start: 20021101
  9. NAPROXEN [Concomitant]
     Dates: start: 20041124, end: 20050310

REACTIONS (8)
  - CARDIOMEGALY [None]
  - CLOSTRIDIUM COLITIS [None]
  - CUTANEOUS VASCULITIS [None]
  - EMPYEMA [None]
  - ORAL CANDIDIASIS [None]
  - PERICARDIAL EFFUSION [None]
  - PLEURAL EFFUSION [None]
  - RASH [None]
